FAERS Safety Report 20612203 (Version 1)
Quarter: 2022Q1

REPORT INFORMATION
  Report Type: Spontaneous
  Country: US (occurrence: None)
  Receive Date: 20220318
  Receipt Date: 20220318
  Transmission Date: 20220423
  Serious: Yes (Hospitalization)
  Sender: FDA-Public Use
  Company Number: None

PATIENT
  Sex: Male

DRUGS (22)
  1. GAMMAGARD [Suspect]
     Active Substance: HUMAN IMMUNOGLOBULIN G
     Indication: Immunodeficiency common variable
     Dosage: OTHER FREQUENCY : EVERY 4 WEEKS;?
     Route: 042
  2. BENADRYL [Concomitant]
     Active Substance: DIPHENHYDRAMINE HYDROCHLORIDE
  3. TEMAZEPAM [Concomitant]
     Active Substance: TEMAZEPAM
  4. SPIRONOLACTONE [Concomitant]
     Active Substance: SPIRONOLACTONE
  5. CARVEDILOL [Concomitant]
     Active Substance: CARVEDILOL
  6. OMEPRAZOLE [Concomitant]
     Active Substance: OMEPRAZOLE
  7. FIBER DIET [Concomitant]
  8. ALEVE [Concomitant]
     Active Substance: NAPROXEN SODIUM
  9. NITROGLYCERIN [Concomitant]
     Active Substance: NITROGLYCERIN
  10. PRAMIPEXOLE DIHYDROCHLORI [Concomitant]
  11. RITUXAN [Concomitant]
     Active Substance: RITUXIMAB
  12. FERROUS SULFATE [Concomitant]
     Active Substance: FERROUS SULFATE
  13. VITAMINS [Concomitant]
     Active Substance: VITAMINS
  14. KLOR-CON [Concomitant]
     Active Substance: POTASSIUM CHLORIDE
  15. FUROSEMIDE [Concomitant]
     Active Substance: FUROSEMIDE
  16. DEXILANT [Concomitant]
     Active Substance: DEXLANSOPRAZOLE
  17. CALTRATE 600+D [Concomitant]
  18. PRADAXA [Concomitant]
     Active Substance: DABIGATRAN ETEXILATE MESYLATE
  19. VITAMIN D3 [Concomitant]
     Active Substance: CHOLECALCIFEROL
  20. VOLTAREN [Concomitant]
     Active Substance: DICLOFENAC SODIUM
  21. LATANOPROST [Concomitant]
     Active Substance: LATANOPROST
  22. CARISOPRODOL | KEPPRA [Concomitant]

REACTIONS (3)
  - Chills [None]
  - Pyrexia [None]
  - Infusion related reaction [None]
